FAERS Safety Report 12979109 (Version 1)
Quarter: 2016Q4

REPORT INFORMATION
  Report Type: Spontaneous
  Country: DE (occurrence: DE)
  Receive Date: 20161128
  Receipt Date: 20161128
  Transmission Date: 20170207
  Serious: Yes (Hospitalization, Other)
  Sender: FDA-Public Use
  Company Number: DE-GLAXOSMITHKLINE-DE2016GSK154109

PATIENT
  Sex: Female
  Weight: 82 kg

DRUGS (4)
  1. MONTELUKAST [Concomitant]
     Active Substance: MONTELUKAST SODIUM
     Dosage: 1 DF, QD
  2. LORA ADGC KSK [Concomitant]
     Dosage: 1 DF, QD
  3. RELVAR ELLIPTA [Suspect]
     Active Substance: FLUTICASONE FUROATE\VILANTEROL TRIFENATATE
     Indication: PRODUCT USED FOR UNKNOWN INDICATION
     Dosage: 1 DF, QD (184/22 MCG)
  4. SALBULAIR AUTOHALER [Concomitant]
     Dosage: UNK, PRN

REACTIONS (3)
  - Liver function test increased [Unknown]
  - Abdominal pain [Unknown]
  - Biliary dilatation [Unknown]
